FAERS Safety Report 17846661 (Version 2)
Quarter: 2020Q2

REPORT INFORMATION
  Report Type: Spontaneous
  Country: US (occurrence: US)
  Receive Date: 20200601
  Receipt Date: 20200612
  Transmission Date: 20200714
  Serious: Yes (Death, Life-Threatening, Hospitalization)
  Sender: FDA-Public Use
  Company Number: US-TEVA-2020-US-1242231

PATIENT
  Age: 65 Year
  Sex: Male

DRUGS (7)
  1. PHENYLEPHRINE [Suspect]
     Active Substance: PHENYLEPHRINE HYDROCHLORIDE
     Indication: VASOPRESSIVE THERAPY
     Route: 065
  2. NOREPINEPHRINE. [Suspect]
     Active Substance: NOREPINEPHRINE
     Indication: VASOPRESSIVE THERAPY
     Route: 065
  3. PREZISTA [Suspect]
     Active Substance: DARUNAVIR ETHANOLATE
     Indication: SUICIDE ATTEMPT
     Dosage: INGESTED 30 TABLETS 800MG
     Route: 048
  4. ANGIOTENSIN II [Suspect]
     Active Substance: ANGIOTENSIN II
     Indication: VASOPRESSIVE THERAPY
     Route: 065
  5. TAMSULOSIN [Suspect]
     Active Substance: TAMSULOSIN
     Indication: SUICIDE ATTEMPT
     Dosage: INGESTED 30 TABLETS OF TAMSULOSIN 0.4 MG
     Route: 048
  6. GENVOYA [Suspect]
     Active Substance: COBICISTAT\ELVITEGRAVIR\EMTRICITABINE\TENOFOVIR ALAFENAMIDE FUMARATE
     Indication: SUICIDE ATTEMPT
     Dosage: INGESTED 30 TABLETS (ELVITEGRAVIR 150MG, COBICISTAT 150MG, EMTRICITABINE200MG, TENOFOVIR 20MG)
     Route: 048
  7. VASOPRESSIN. [Suspect]
     Active Substance: VASOPRESSIN
     Indication: VASOPRESSIVE THERAPY
     Route: 065

REACTIONS (8)
  - Intentional overdose [Unknown]
  - Therapy non-responder [Fatal]
  - Mental status changes [Unknown]
  - Blood pressure decreased [Unknown]
  - Bundle branch block right [Fatal]
  - Pulseless electrical activity [Fatal]
  - Completed suicide [Fatal]
  - Toxicity to various agents [Fatal]
